FAERS Safety Report 6297213-3 (Version None)
Quarter: 2009Q3

REPORT INFORMATION
  Report Type: 
  Country: None (occurrence: None)
  Receive Date: 20090804
  Receipt Date: 20090804
  Transmission Date: 20100115
  Serious: Yes (Other)
  Sender: FDA-Public Use
  Company Number: None

PATIENT
  Age: 38 Year
  Sex: Male
  Weight: 101.6057 kg

DRUGS (2)
  1. PREDNISONE TAB [Suspect]
     Dosage: 5 TABLETS EVERY A.M., ONCE A DAY
     Dates: start: 20090630
  2. METHYLPREDNISOLONE 4MG TAB [Suspect]
     Dosage: 4MG, DOSE PK 21, 3X'S DAY/ 1 A DAY
     Dates: start: 20090129

REACTIONS (4)
  - ABASIA [None]
  - ARTHRALGIA [None]
  - PAIN [None]
  - PRODUCT SUBSTITUTION ISSUE [None]
